FAERS Safety Report 9308252 (Version 1)
Quarter: 2013Q2

REPORT INFORMATION
  Report Type: Spontaneous
  Country: DE (occurrence: DE)
  Receive Date: 20130524
  Receipt Date: 20130524
  Transmission Date: 20140414
  Serious: Yes (Hospitalization, Other)
  Sender: FDA-Public Use
  Company Number: DE-PFIZER INC-2013155668

PATIENT
  Age: 32 Year
  Sex: Male

DRUGS (4)
  1. QUETIAPINE FUMARATE [Suspect]
     Dosage: UNK
  2. SERTRALINE HCL [Suspect]
     Dosage: UNK
  3. LORAZEPAM [Suspect]
     Dosage: UNK
  4. LITHIUM CARBONATE [Suspect]
     Dosage: UNK

REACTIONS (2)
  - Overdose [Recovered/Resolved]
  - Toxicity to various agents [Recovered/Resolved]
